FAERS Safety Report 5064928-4 (Version None)
Quarter: 2006Q3

REPORT INFORMATION
  Report Type: 
  Country: None (occurrence: None)
  Receive Date: 20060728
  Receipt Date: 20050131
  Transmission Date: 20061208
  Serious: Yes (Other)
  Sender: FDA-Public Use
  Company Number: US-GLAXOSMITHKLINE-A0542946A

PATIENT
  Age: 63 Year
  Sex: Female
  Weight: 84.1 kg

DRUGS (3)
  1. BC HEADACHE POWDER [Suspect]
     Indication: EAR PAIN
     Route: 048
     Dates: start: 20051104, end: 20051101
  2. ARTHRITIS MEDICATION [Concomitant]
     Indication: ARTHRITIS
     Route: 042
  3. NORVASC [Concomitant]
     Indication: HYPERTENSION
     Route: 048

REACTIONS (8)
  - DEAFNESS [None]
  - EAR DISCOMFORT [None]
  - EAR INFECTION [None]
  - EAR PAIN [None]
  - HEADACHE [None]
  - HEARING IMPAIRED [None]
  - TINNITUS [None]
  - VERTIGO [None]
